FAERS Safety Report 11805949 (Version 2)
Quarter: 2015Q4

REPORT INFORMATION
  Report Type: Spontaneous
  Country: FR (occurrence: FR)
  Receive Date: 20151207
  Receipt Date: 20151229
  Transmission Date: 20160305
  Serious: Yes (Hospitalization)
  Sender: FDA-Public Use
  Company Number: FR-ROCHE-1673167

PATIENT
  Age: 53 Year
  Sex: Male

DRUGS (15)
  1. AXELER [Concomitant]
     Active Substance: AMLODIPINE BESYLATE\OLMESARTAN MEDOXOMIL
  2. PROFENID [Concomitant]
     Active Substance: KETOPROFEN
  3. KARDEGIC [Concomitant]
     Active Substance: ASPIRIN LYSINE
  4. DAFALGAN [Concomitant]
     Active Substance: ACETAMINOPHEN
  5. PACLITAXEL. [Suspect]
     Active Substance: PACLITAXEL
     Indication: NEUROENDOCRINE CARCINOMA
     Dosage: HOSPIRA
     Route: 042
     Dates: start: 20151023, end: 20151106
  6. LASILIX [Concomitant]
     Active Substance: FUROSEMIDE
  7. MEDIATENSYL [Concomitant]
     Active Substance: URAPIDIL
  8. CRESTOR [Concomitant]
     Active Substance: ROSUVASTATIN CALCIUM
  9. OXYCONTIN [Concomitant]
     Active Substance: OXYCODONE HYDROCHLORIDE
  10. LYRICA [Concomitant]
     Active Substance: PREGABALIN
  11. ADANCOR [Concomitant]
     Active Substance: NICORANDIL
  12. AVASTIN [Suspect]
     Active Substance: BEVACIZUMAB
     Indication: NEUROENDOCRINE CARCINOMA
     Route: 042
     Dates: start: 20151023, end: 20151023
  13. OXYNORM [Concomitant]
     Active Substance: OXYCODONE HYDROCHLORIDE
  14. NATISPRAY [Concomitant]
     Active Substance: NITROGLYCERIN
  15. PROCORALAN [Concomitant]
     Active Substance: IVABRADINE

REACTIONS (1)
  - Interstitial lung disease [Recovered/Resolved]

NARRATIVE: CASE EVENT DATE: 201511
